FAERS Safety Report 7520007-5 (Version None)
Quarter: 2011Q2

REPORT INFORMATION
  Report Type: 
  Country: None (occurrence: None)
  Receive Date: 20110602
  Receipt Date: 20110520
  Transmission Date: 20111010
  Serious: Yes (Other)
  Sender: FDA-Public Use
  Company Number: PHHY2011US06929

PATIENT
  Sex: Female

DRUGS (4)
  1. AFINITOR [Suspect]
     Indication: ASTROCYTOMA
     Dosage: 5 MG, QD
     Route: 048
     Dates: start: 20110108
  2. KEPPRA [Concomitant]
  3. RAPAMUNE [Concomitant]
  4. VENPAT [Concomitant]

REACTIONS (7)
  - SCAB [None]
  - DRY SKIN [None]
  - RASH [None]
  - RASH PRURITIC [None]
  - ERYTHEMA [None]
  - SCRATCH [None]
  - INFANTILE SPASMS [None]
